FAERS Safety Report 12640932 (Version 2)
Quarter: 2017Q3

REPORT INFORMATION
  Report Type: Spontaneous
  Country: FR (occurrence: FR)
  Receive Date: 20160810
  Receipt Date: 20170720
  Transmission Date: 20171127
  Serious: Yes (Hospitalization, Other)
  Sender: FDA-Public Use
  Company Number: FR-GLAXOSMITHKLINE-FR2016GSK114734

PATIENT
  Age: 73 Year
  Sex: Female

DRUGS (9)
  1. PREVISCAN (FLUINDIONE) [Concomitant]
     Active Substance: FLUINDIONE
     Dosage: 2 MG, Z
  2. TRAMADOL. [Concomitant]
     Active Substance: TRAMADOL
  3. LAMICTAL [Suspect]
     Active Substance: LAMOTRIGINE
     Indication: NEURALGIA
     Dosage: UNK
     Route: 048
     Dates: start: 20160524, end: 20160708
  4. OGASTORO [Suspect]
     Active Substance: LANSOPRAZOLE
     Indication: GASTRIC ULCER
     Dosage: 30 MG, BID
     Route: 048
     Dates: start: 20160617, end: 20160712
  5. LEVOTHYROX [Concomitant]
     Active Substance: LEVOTHYROXINE
  6. COUMADINE [Concomitant]
     Active Substance: WARFARIN SODIUM
     Dosage: 2 G, Z
  7. MODOPAR [Suspect]
     Active Substance: BENSERAZIDE HYDROCHLORIDE\LEVODOPA
     Indication: EXTRAPYRAMIDAL DISORDER
     Dosage: UNK
     Route: 048
     Dates: start: 20160524, end: 20160706
  8. FENOFIBRATE. [Concomitant]
     Active Substance: FENOFIBRATE
  9. CYMBALTA [Concomitant]
     Active Substance: DULOXETINE HYDROCHLORIDE
     Dosage: UNK

REACTIONS (4)
  - Drug reaction with eosinophilia and systemic symptoms [Recovered/Resolved]
  - Dyspnoea [Recovered/Resolved]
  - Mucosal inflammation [Recovered/Resolved]
  - Off label use [Unknown]

NARRATIVE: CASE EVENT DATE: 20160524
